FAERS Safety Report 10960747 (Version 1)
Quarter: 2015Q1

REPORT INFORMATION
  Report Type: Spontaneous
  Country: US (occurrence: None)
  Receive Date: 20150326
  Receipt Date: 20150326
  Transmission Date: 20150721
  Serious: Yes (Hospitalization, Disabling)
  Sender: FDA-Public Use
  Company Number: None

PATIENT
  Age: 19 Year
  Sex: Male

DRUGS (1)
  1. PEGASPARAGASE [Suspect]
     Active Substance: PEGASPARGASE
     Indication: B PRECURSOR TYPE ACUTE LEUKAEMIA
     Dosage: 2500UNITS/M2  ONE TIME DOSE
     Route: 042
     Dates: start: 20150304, end: 20150304

REACTIONS (4)
  - Pancreatitis [None]
  - Hepatotoxicity [None]
  - Splenic infarction [None]
  - Pulmonary embolism [None]

NARRATIVE: CASE EVENT DATE: 20150313
